FAERS Safety Report 13054837 (Version 2)
Quarter: 2017Q1

REPORT INFORMATION
  Report Type: Spontaneous
  Country: US (occurrence: US)
  Receive Date: 20161222
  Receipt Date: 20170207
  Transmission Date: 20170428
  Serious: No
  Sender: FDA-Public Use
  Company Number: US-INCYTE CORPORATION-2016IN008034

PATIENT
  Age: 66 Year
  Sex: Male
  Weight: 65.76 kg

DRUGS (2)
  1. VITAMIN B12 [Concomitant]
     Active Substance: CYANOCOBALAMIN
     Indication: PRODUCT USED FOR UNKNOWN INDICATION
  2. JAKAFI [Suspect]
     Active Substance: RUXOLITINIB
     Indication: MYELOFIBROSIS
     Dosage: 5 MG, QD
     Route: 048
     Dates: start: 20160301

REACTIONS (5)
  - Loose tooth [Unknown]
  - White blood cell count abnormal [Unknown]
  - Red blood cell count abnormal [Unknown]
  - Weight decreased [Unknown]
  - Hypogonadism [Unknown]

NARRATIVE: CASE EVENT DATE: 20161013
